FAERS Safety Report 10957706 (Version 5)
Quarter: 2016Q3

REPORT INFORMATION
  Report Type: Spontaneous
  Country: US (occurrence: US)
  Receive Date: 20150326
  Receipt Date: 20160819
  Transmission Date: 20161109
  Serious: Yes (Hospitalization, Other)
  Sender: FDA-Public Use
  Company Number: US-PFIZER INC-2015102692

PATIENT
  Age: 69 Year
  Sex: Female

DRUGS (28)
  1. KLOR-CON [Concomitant]
     Active Substance: POTASSIUM CHLORIDE
     Dosage: 10 MG, DAILY
  2. GEMFIBROZIL. [Concomitant]
     Active Substance: GEMFIBROZIL
     Indication: BLOOD CHOLESTEROL ABNORMAL
     Dosage: 600 MG, 1X/DAY
  3. VIMPAT [Concomitant]
     Active Substance: LACOSAMIDE
     Indication: SEIZURE
     Dosage: 100 MG, 2X/DAY
     Route: 048
     Dates: start: 20151110
  4. LYRICA [Suspect]
     Active Substance: PREGABALIN
     Indication: GAIT DISTURBANCE
  5. METOCLOPRAMIDE. [Concomitant]
     Active Substance: METOCLOPRAMIDE
     Indication: GASTRIC DISORDER
     Dosage: 5 MG, MONTHLY
  6. FENTANYL. [Concomitant]
     Active Substance: FENTANYL
     Dosage: 1 PATCH TO SKIN TRANSDERMAL EVERY 72 HOURS
     Route: 062
     Dates: start: 20151106
  7. LYRICA [Suspect]
     Active Substance: PREGABALIN
     Indication: PULMONARY THROMBOSIS
  8. LYRICA [Suspect]
     Active Substance: PREGABALIN
     Indication: PAIN
  9. LASIX [Suspect]
     Active Substance: FUROSEMIDE
     Indication: CARDIAC FAILURE
     Dosage: 20 MG, 1X/DAY
     Route: 048
  10. PROZAC [Suspect]
     Active Substance: FLUOXETINE HYDROCHLORIDE
     Dosage: 20 MG, IN THE MORNING THREE A DAY
     Route: 048
  11. SUCRALFATE. [Concomitant]
     Active Substance: SUCRALFATE
     Indication: GASTRIC DISORDER
     Dosage: UNK, 1X/DAY BEDTIME
  12. LIPITOR [Concomitant]
     Active Substance: ATORVASTATIN CALCIUM
     Dosage: 40 MG, MONTHLY
     Route: 048
  13. ASPIRIN. [Concomitant]
     Active Substance: ASPIRIN
     Dosage: 81 MG, 1X/DAY
     Route: 048
  14. COREG [Suspect]
     Active Substance: CARVEDILOL
     Dosage: 3.125 MG, 2X/DAY
     Route: 048
  15. PROZAC [Suspect]
     Active Substance: FLUOXETINE HYDROCHLORIDE
     Dosage: 20 MG, 1X/DAY
     Route: 048
  16. FLUDROCORTISONE [Concomitant]
     Active Substance: FLUDROCORTISONE
     Dosage: 0.1 MG, 1X/DAY  (EVERY 24 HOURS)
  17. XANAX [Concomitant]
     Active Substance: ALPRAZOLAM
     Dosage: 1 MG, 4X/DAY
     Route: 048
     Dates: start: 20151106
  18. PERCOCET [Concomitant]
     Active Substance: ACETAMINOPHEN\OXYCODONE HYDROCHLORIDE
     Dosage: 7.5-325 MG TABLET, 1 TABLET AS NEEDED EVERY 6 HOURS PRN
     Route: 048
     Dates: start: 20151106
  19. OMEPRAZOLE. [Concomitant]
     Active Substance: OMEPRAZOLE
     Dosage: 40 MG, 2X/DAY
     Route: 048
  20. CYANOCOBALAMIN. [Concomitant]
     Active Substance: CYANOCOBALAMIN
     Dosage: 15 ML, 1X/DAY
     Route: 048
  21. COREG [Suspect]
     Active Substance: CARVEDILOL
     Indication: CARDIAC DISORDER
     Dosage: 12.5 MG, 2X/DAY
     Route: 048
  22. ATORVASTATIN [Concomitant]
     Active Substance: ATORVASTATIN
     Dosage: 40 MG, DAILY
  23. DIGITEX [Concomitant]
     Dosage: 125 MG, 1X/DAY
  24. ZOFRAN [Concomitant]
     Active Substance: ONDANSETRON HYDROCHLORIDE
     Dosage: 4 MG, TWICE A DAY AS NEEDED
     Route: 048
     Dates: start: 20151217
  25. FLUDROCORTISONE ACETATE. [Concomitant]
     Active Substance: FLUDROCORTISONE ACETATE
     Dosage: 0.1 MG, WEEKLY (EVERY 7 DAYS)
     Route: 048
  26. LYRICA [Suspect]
     Active Substance: PREGABALIN
     Indication: NERVE INJURY
     Dosage: 150 MG, 2X/DAY
     Route: 048
     Dates: start: 2006
  27. LASIX [Suspect]
     Active Substance: FUROSEMIDE
     Indication: FLUID RETENTION
     Dosage: 20 MG, 2X/DAY
     Route: 048
  28. FERROUS GLUCONATE [Concomitant]
     Active Substance: FERROUS GLUCONATE
     Dosage: 325 MG, 1X/DAY (36 FE)
     Route: 048

REACTIONS (11)
  - Seizure [Recovered/Resolved]
  - Nausea [Recovered/Resolved]
  - Weight decreased [Unknown]
  - Adrenal insufficiency [Not Recovered/Not Resolved]
  - Cerebrovascular accident [Unknown]
  - Respiratory failure [Not Recovered/Not Resolved]
  - Product use issue [Unknown]
  - Loss of consciousness [Unknown]
  - Cardiac failure congestive [Not Recovered/Not Resolved]
  - Renal failure [Unknown]
  - Malaise [Unknown]

NARRATIVE: CASE EVENT DATE: 2006
